FAERS Safety Report 22033473 (Version 1)
Quarter: 2023Q1

REPORT INFORMATION
  Report Type: Spontaneous
  Country: FR (occurrence: FR)
  Receive Date: 20230224
  Receipt Date: 20230224
  Transmission Date: 20230417
  Serious: Yes (Life-Threatening, Other)
  Sender: FDA-Public Use
  Company Number: None

PATIENT
  Age: 57 Year
  Sex: Male

DRUGS (5)
  1. PROPOFOL [Suspect]
     Active Substance: PROPOFOL
     Indication: General anaesthesia
     Dosage: 1 DOSAGE FORM,1 TOTAL
     Route: 042
     Dates: start: 201906, end: 201906
  2. CEFAZOLIN [Suspect]
     Active Substance: CEFAZOLIN
     Indication: Antibiotic prophylaxis
     Dosage: 1 DOSAGE FORM, 1 TOTAL
     Route: 042
     Dates: start: 201906, end: 201906
  3. DEXAMETHASONE [Suspect]
     Active Substance: DEXAMETHASONE
     Indication: General anaesthesia
     Dosage: 1 DOSAGE FORM, 1 TOTAL
     Route: 042
     Dates: start: 201906, end: 201906
  4. REMIFENTANIL [Suspect]
     Active Substance: REMIFENTANIL
     Indication: General anaesthesia
     Dosage: 1 DOSAGE FORM, 1 TOTAL
     Route: 042
     Dates: start: 201906, end: 201906
  5. KETAMINE [Suspect]
     Active Substance: KETAMINE
     Indication: General anaesthesia
     Dosage: 1 DOSAGE FORM,1 TOTAL
     Route: 042
     Dates: start: 201906, end: 201906

REACTIONS (2)
  - Anaphylactic reaction [Recovered/Resolved]
  - Allergy test negative [Recovered/Resolved]

NARRATIVE: CASE EVENT DATE: 20190601
